FAERS Safety Report 4980165-3 (Version None)
Quarter: 2006Q2

REPORT INFORMATION
  Report Type: 
  Country: None (occurrence: None)
  Receive Date: 20060424
  Receipt Date: 20060413
  Transmission Date: 20061013
  Serious: Yes (Hospitalization)
  Sender: FDA-Public Use
  Company Number: US-JNJFOC-20060403261

PATIENT
  Sex: Female
  Weight: 82.56 kg

DRUGS (8)
  1. REMICADE [Suspect]
     Indication: RHEUMATOID ARTHRITIS
     Route: 042
  2. PREDNISONE [Concomitant]
  3. AZATHIOPRINE [Concomitant]
  4. SPIRONOLACTONE [Concomitant]
  5. COUMADIN [Concomitant]
  6. FOLIC ACID [Concomitant]
  7. SOTALOL HCL [Concomitant]
  8. MAGNESIUM OXIDE [Concomitant]

REACTIONS (1)
  - ATRIAL TACHYCARDIA [None]
